FAERS Safety Report 17212253 (Version 1)
Quarter: 2019Q4

REPORT INFORMATION
  Report Type: Spontaneous
  Country: SA (occurrence: SA)
  Receive Date: 20191230
  Receipt Date: 20191230
  Transmission Date: 20200122
  Serious: Yes (Death, Life-Threatening, Other)
  Sender: FDA-Public Use
  Company Number: SA-AMGEN-SAUSP2019214706

PATIENT

DRUGS (10)
  1. FILGRASTIM [Suspect]
     Active Substance: FILGRASTIM
     Indication: NEUTROPHIL COUNT DECREASED
     Dosage: 400 MICROGRAM/SQ. METER, QD (FROM DAY ONE)
     Route: 058
     Dates: start: 200001, end: 201412
  2. VORICONAZOLE. [Concomitant]
     Active Substance: VORICONAZOLE
     Indication: ANTIFUNGAL PROPHYLAXIS
     Dosage: UNK, (9 MG/KG/DOSE TWICE DAILY ORAL/INTRAVENOUS AND 8 MG/KG/DOSE TWICE DAILY)
  3. TRIMETHOPRIM SULFAMETHOXAZOLE [Concomitant]
     Active Substance: SULFAMETHOXAZOLE\TRIMETHOPRIM
     Indication: ANTIFUNGAL PROPHYLAXIS
     Dosage: UNK
  4. FLUDARABINE [Concomitant]
     Active Substance: FLUDARABINE PHOSPHATE
     Indication: LEUKAEMIA RECURRENT
     Dosage: UNK, (30 MG/M2 DAILY) (MAXIMUM 50 MG BY 30 MINUTES FIVE DOSES ON DAYS TWO AND SIX)
     Route: 042
     Dates: start: 200001, end: 201412
  5. ARA-C [Concomitant]
     Active Substance: CYTARABINE
     Indication: LEUKAEMIA RECURRENT
     Dosage: 2 GRAM PER SQUARE METRE, QD
     Route: 042
     Dates: start: 200001, end: 201412
  6. IDA [IDARUBICIN HYDROCHLORIDE] [Concomitant]
     Indication: LEUKAEMIA RECURRENT
     Dosage: 8 MILLIGRAM/SQ. METER, QD
     Route: 042
     Dates: start: 200001, end: 201412
  7. ITRACONAZOLE. [Concomitant]
     Active Substance: ITRACONAZOLE
     Indication: ANTIFUNGAL PROPHYLAXIS
     Dosage: 2.5 MILLIGRAM/KILOGRAM, BID
     Route: 048
  8. CEFTAZIDIME. [Concomitant]
     Active Substance: CEFTAZIDIME
     Indication: FEBRILE NEUTROPENIA
     Dosage: UNK
     Dates: start: 200001, end: 200901
  9. PIPERACILLIN/TAZOBACTAM [Concomitant]
     Active Substance: PIPERACILLIN SODIUM\TAZOBACTAM SODIUM
     Indication: FEBRILE NEUTROPENIA
     Dosage: UNK
     Dates: start: 200901
  10. GENTAMICIN. [Concomitant]
     Active Substance: GENTAMICIN
     Indication: FEBRILE NEUTROPENIA
     Dosage: UNK
     Dates: start: 200001

REACTIONS (9)
  - Sepsis [Fatal]
  - Haematotoxicity [Unknown]
  - Systemic candida [Fatal]
  - Aspergillus infection [Fatal]
  - Infection [Unknown]
  - Cardiotoxicity [Unknown]
  - Leukaemia recurrent [Fatal]
  - Drug ineffective [Unknown]
  - Gastrointestinal toxicity [Unknown]
